FAERS Safety Report 8299885-0 (Version None)
Quarter: 2012Q2

REPORT INFORMATION
  Report Type: 
  Country: None (occurrence: None)
  Receive Date: 20120419
  Receipt Date: 20120411
  Transmission Date: 20120825
  Serious: Yes (Hospitalization, Other)
  Sender: FDA-Public Use
  Company Number: TR-ROXANE LABORATORIES, INC.-2012-RO-01044RO

PATIENT
  Age: 25 Year
  Sex: Female
  Weight: 54 kg

DRUGS (5)
  1. AZATHIOPRINE [Suspect]
     Indication: CROHN'S DISEASE
  2. AZATHIOPRINE [Suspect]
     Dosage: 100 MG
  3. METRONIDAZOLE [Suspect]
     Indication: CROHN'S DISEASE
  4. INFLIXIMAB [Suspect]
     Indication: CROHN'S DISEASE
  5. AZATHIOPRINE [Suspect]

REACTIONS (4)
  - FEMALE GENITAL TRACT FISTULA [None]
  - NEUTROPENIA [None]
  - ANAL FISTULA [None]
  - THROMBOCYTOPENIA [None]
